FAERS Safety Report 15544759 (Version 1)
Quarter: 2018Q4

REPORT INFORMATION
  Report Type: Report from Study
  Country: CA (occurrence: CA)
  Receive Date: 20181024
  Receipt Date: 20181024
  Transmission Date: 20190205
  Serious: Yes (Hospitalization, Other)
  Sender: FDA-Public Use
  Company Number: CA-ALK-ABELLO A/S-2018AA003482

PATIENT

DRUGS (1)
  1. RAGWEED MIXTURE [Suspect]
     Active Substance: AMBROSIA ARTEMISIIFOLIA POLLEN\AMBROSIA BIDENTATA POLLEN\AMBROSIA PSILOSTACHYA POLLEN\AMBROSIA TRIFIDA POLLEN
     Indication: SEASONAL ALLERGY
     Dosage: 12 AMB A 1 UNITS

REACTIONS (2)
  - Abdominal pain [Unknown]
  - Crohn^s disease [Unknown]

NARRATIVE: CASE EVENT DATE: 201809
